FAERS Safety Report 15334845 (Version 2)
Quarter: 2018Q4

REPORT INFORMATION
  Report Type: Spontaneous
  Country: NL (occurrence: NL)
  Receive Date: 20180830
  Receipt Date: 20180912
  Transmission Date: 20190204
  Serious: Yes (Congenital Anomaly)
  Sender: FDA-Public Use
  Company Number: NL-TEVA-2018-NL-950030

PATIENT
  Age: 0 Week
  Sex: Male
  Weight: 3.1 kg

DRUGS (4)
  1. CARBAMAZEPINE ZETPIL, 200 MG (MILLIGRAM) [Suspect]
     Active Substance: CARBAMAZEPINE
     Indication: EPILEPSY
     Route: 065
  2. CARBAMAZEPINE ZETPIL, 200 MG (MILLIGRAM) [Suspect]
     Active Substance: CARBAMAZEPINE
     Indication: ANXIETY DISORDER
     Dosage: 600 MILLIGRAM DAILY; 600 MG PER DAG
     Route: 065
  3. LORAZEPAM TABLET, 1 MG (MILLIGRAM) [Suspect]
     Active Substance: LORAZEPAM
     Indication: ANXIETY DISORDER
  4. LORAZEPAM TABLET, 1 MG (MILLIGRAM) [Suspect]
     Active Substance: LORAZEPAM
     Indication: EPILEPSY
     Route: 065

REACTIONS (2)
  - Hypospadias [Unknown]
  - Maternal exposure during pregnancy [Unknown]

NARRATIVE: CASE EVENT DATE: 20180731
